FAERS Safety Report 6247662-4 (Version None)
Quarter: 2009Q2

REPORT INFORMATION
  Report Type: 
  Country: None (occurrence: None)
  Receive Date: 20090626
  Receipt Date: 20090615
  Transmission Date: 20091009
  Serious: Yes (Hospitalization)
  Sender: FDA-Public Use
  Company Number: US-BAXTER-2009BH009840

PATIENT
  Age: 51 Year
  Sex: Female
  Weight: 150 kg

DRUGS (1)
  1. DIANEAL [Suspect]
     Indication: PERITONEAL DIALYSIS
     Route: 033
     Dates: start: 20080829

REACTIONS (6)
  - ASTHENIA [None]
  - CALCIPHYLAXIS [None]
  - CELLULITIS [None]
  - CONFUSIONAL STATE [None]
  - DIABETES MELLITUS INADEQUATE CONTROL [None]
  - HYPOTENSION [None]
